FAERS Safety Report 9491083 (Version 1)
Quarter: 2013Q3

REPORT INFORMATION
  Report Type: Spontaneous
  Country: IN (occurrence: IN)
  Receive Date: 20130830
  Receipt Date: 20130830
  Transmission Date: 20140515
  Serious: Yes (Hospitalization)
  Sender: FDA-Public Use
  Company Number: IN-SUN PHARMACEUTICAL INDUSTRIES LTD-2013SUN04541

PATIENT
  Age: 55 Year
  Sex: Male

DRUGS (7)
  1. OXALIPLATIN [Suspect]
     Indication: COLON CANCER
     Dosage: 85 MG/M2, OVER 120 MINUTES
     Route: 042
  2. 5-FLUOROURACIL [Suspect]
     Indication: COLON CANCER
     Dosage: 400 MG/M2, OVER 2-4 MINUTES
     Route: 042
  3. 5-FLUOROURACIL [Suspect]
     Dosage: 600 MG/M2 AS A 22 HOUR INFUSION
     Route: 042
  4. 5-FLUOROURACIL [Suspect]
     Dosage: 400 MG/M2 OVER 2-4 MINUTES
     Route: 042
  5. 5-FLUOROURACIL [Suspect]
     Dosage: 600 MG/M2 AS A 22 HOUR INFUSION
     Route: 042
  6. LEUCOVORIN [Concomitant]
     Dosage: 200 MG/M2, OVER 120 MINUTES
     Route: 042
  7. LEUCOVORIN [Concomitant]
     Dosage: 200 MG/M2, OVER 120 MINUTES
     Route: 042

REACTIONS (1)
  - Leukoencephalopathy [Recovered/Resolved]
